FAERS Safety Report 12086670 (Version 1)
Quarter: 2016Q1

REPORT INFORMATION
  Report Type: Spontaneous
  Country: US (occurrence: US)
  Receive Date: 20160217
  Receipt Date: 20160217
  Transmission Date: 20160526
  Serious: No
  Sender: FDA-Public Use
  Company Number: US-ALLERGAN-1503437US

PATIENT
  Sex: Female

DRUGS (1)
  1. RESTASIS [Suspect]
     Active Substance: CYCLOSPORINE
     Indication: DRY EYE
     Dosage: UNK UNK, SINGLE
     Route: 047

REACTIONS (3)
  - Erythema of eyelid [Unknown]
  - Scleral hyperaemia [Unknown]
  - Eye pruritus [Recovered/Resolved]
